FAERS Safety Report 15158603 (Version 2)
Quarter: 2018Q3

REPORT INFORMATION
  Report Type: Spontaneous
  Country: GR (occurrence: GR)
  Receive Date: 20180718
  Receipt Date: 20180904
  Transmission Date: 20181010
  Serious: Yes (Other)
  Sender: FDA-Public Use
  Company Number: GR-CELGENEUS-GRC-20180703459

PATIENT
  Age: 70 Year
  Sex: Female

DRUGS (4)
  1. OTEZLA [Suspect]
     Active Substance: APREMILAST
     Indication: PSORIASIS
     Dosage: 60MG DIVIDED IN TWO DOSES
     Route: 048
     Dates: start: 20180706
  2. SEROPRAM [Concomitant]
     Indication: DEPRESSION
     Route: 065
     Dates: start: 2010
  3. ZURCAZOL [Concomitant]
     Active Substance: PANTOPRAZOLE SODIUM
     Indication: DIAPHRAGMATIC HERNIA
     Route: 065
     Dates: start: 2015
  4. T4 [Concomitant]
     Active Substance: LEVOTHYROXINE
     Indication: BRONCHIECTASIS
     Route: 065
     Dates: start: 2000

REACTIONS (1)
  - Gastroenteritis [Unknown]

NARRATIVE: CASE EVENT DATE: 20180711
